FAERS Safety Report 4926649-5 (Version None)
Quarter: 2006Q1

REPORT INFORMATION
  Report Type: 
  Country: None (occurrence: None)
  Receive Date: 20060228
  Receipt Date: 20050517
  Transmission Date: 20060701
  Serious: No
  Sender: FDA-Public Use
  Company Number: US-GLAXOSMITHKLINE-A0558973A

PATIENT
  Age: 45 Year
  Sex: Female

DRUGS (2)
  1. LAMICTAL [Suspect]
     Indication: BIPOLAR DISORDER
     Dosage: 100MG TWICE PER DAY
     Route: 048
     Dates: start: 20041006
  2. NO CONCURRENT MEDICATION [Concomitant]

REACTIONS (6)
  - CLUMSINESS [None]
  - DISTURBANCE IN ATTENTION [None]
  - DYSPHEMIA [None]
  - DYSPNOEA EXERTIONAL [None]
  - HYPERACUSIS [None]
  - VISUAL DISTURBANCE [None]
